FAERS Safety Report 12984444 (Version 1)
Quarter: 2016Q4

REPORT INFORMATION
  Report Type: Spontaneous
  Country: NZ (occurrence: NZ)
  Receive Date: 20161129
  Receipt Date: 20161129
  Transmission Date: 20170207
  Serious: Yes (Hospitalization)
  Sender: FDA-Public Use
  Company Number: NZ-ELI_LILLY_AND_COMPANY-NZ201611007750

PATIENT
  Age: 29 Year
  Sex: Female

DRUGS (3)
  1. OLANZAPINE. [Suspect]
     Active Substance: OLANZAPINE
     Indication: ANXIETY DISORDER
     Dosage: 2.5 MG, UNKNOWN
     Route: 048
     Dates: start: 20160630, end: 20160630
  2. SERTRALINE [Concomitant]
     Active Substance: SERTRALINE HYDROCHLORIDE
     Dosage: UNK, UNKNOWN
     Route: 048
  3. ZOPICLONE [Concomitant]
     Active Substance: ZOPICLONE
     Dosage: UNK, UNKNOWN
     Route: 048

REACTIONS (6)
  - Dizziness [Recovered/Resolved]
  - Vision blurred [Recovered/Resolved]
  - Hypoaesthesia oral [Recovered/Resolved]
  - Off label use [Unknown]
  - Tongue oedema [Recovered/Resolved]
  - Nausea [Recovered/Resolved]
